FAERS Safety Report 4507692-7 (Version None)
Quarter: 2004Q4

REPORT INFORMATION
  Report Type: 
  Country: None (occurrence: None)
  Receive Date: 20041123
  Receipt Date: 20040820
  Transmission Date: 20050328
  Serious: Yes (Other)
  Sender: FDA-Public Use
  Company Number: 200416451US

PATIENT
  Sex: Female
  Weight: 82 kg

DRUGS (7)
  1. ARAVA [Suspect]
     Indication: RHEUMATOID ARTHRITIS
     Route: 048
     Dates: start: 20020401, end: 20020701
  2. VIOXX [Concomitant]
     Dosage: DOSE: UNKNOWN
  3. CELEBREX [Concomitant]
     Dosage: DOSE: UNKNOWN
  4. FOLIC ACID [Concomitant]
     Dates: start: 20001101
  5. BEXTRA [Concomitant]
     Dosage: DOSE: UNKNOWN
     Dates: start: 20030701
  6. METHOTREXATE [Concomitant]
     Dates: start: 20001101
  7. ENBREL [Concomitant]
     Route: 058
     Dates: start: 20030701

REACTIONS (2)
  - ALANINE AMINOTRANSFERASE INCREASED [None]
  - ASPARTATE AMINOTRANSFERASE INCREASED [None]
